FAERS Safety Report 9293353 (Version 1)
Quarter: 2013Q2

REPORT INFORMATION
  Report Type: Spontaneous
  Country: US (occurrence: US)
  Receive Date: 20130516
  Receipt Date: 20130516
  Transmission Date: 20140414
  Serious: No
  Sender: FDA-Public Use
  Company Number: US-TARO-2012P1056263

PATIENT
  Age: 70 Year
  Sex: Male
  Weight: 92.99 kg

DRUGS (5)
  1. CARBAMAZEPINE EXTENDED RELEASE TABLETS USP 400MG [Suspect]
     Route: 048
     Dates: start: 2010, end: 20120715
  2. CARBAMAZEPINE EXTENDED RELEASE TABLETS USP 400MG [Suspect]
     Route: 048
     Dates: start: 20120716, end: 20120831
  3. CARBAMAZEPINE EXTENDED RELEASE TABLETS USP 400MG [Suspect]
     Route: 048
     Dates: start: 20120901, end: 20120903
  4. CARBAMAZEPINE EXTENDED RELEASE TABLETS USP 400MG [Suspect]
     Route: 048
     Dates: start: 20120904
  5. VITAMIN D [Concomitant]

REACTIONS (2)
  - Drug ineffective for unapproved indication [Recovering/Resolving]
  - Migraine [Unknown]
